FAERS Safety Report 5797062-6 (Version None)
Quarter: 2008Q3

REPORT INFORMATION
  Report Type: 
  Country: None (occurrence: None)
  Receive Date: 20080701
  Receipt Date: 20080618
  Transmission Date: 20090109
  Serious: Yes (Hospitalization, Congenital Anomaly)
  Sender: FDA-Public Use
  Company Number: JP-ASTRAZENECA-2008SE03254

PATIENT
  Age: 0 Day
  Sex: Male
  Weight: 1 kg

DRUGS (1)
  1. BLOPRESS [Suspect]
     Route: 064

REACTIONS (6)
  - FOETAL HEART RATE DECREASED [None]
  - HYPOTENSION [None]
  - NEPHROGENIC DIABETES INSIPIDUS [None]
  - OEDEMA [None]
  - OLIGURIA [None]
  - PULMONARY HYPOPLASIA [None]
